FAERS Safety Report 5259859-0 (Version None)
Quarter: 2007Q1

REPORT INFORMATION
  Report Type: 
  Country: None (occurrence: None)
  Receive Date: 20070309
  Receipt Date: 20070305
  Transmission Date: 20070707
  Serious: Yes (Life-Threatening)
  Sender: FDA-Public Use
  Company Number: DE-AVENTIS-200710569DE

PATIENT
  Age: 39 Year
  Sex: Female
  Weight: 64 kg

DRUGS (40)
  1. CLAFORAN [Suspect]
     Indication: MALARIA
     Route: 042
     Dates: start: 20040308, end: 20040308
  2. CLAFORAN [Suspect]
     Route: 042
     Dates: start: 20040309, end: 20040310
  3. DOXYCYCLIN [Suspect]
     Indication: MALARIA
     Route: 048
     Dates: start: 20040305, end: 20040305
  4. DOXYCYCLIN [Suspect]
     Route: 048
     Dates: start: 20040306, end: 20040310
  5. CHININ [Suspect]
     Indication: MALARIA
     Route: 048
     Dates: start: 20040305, end: 20040305
  6. CHININ [Suspect]
     Route: 042
     Dates: start: 20040305, end: 20040307
  7. PANTOZOL                           /01263202/ [Concomitant]
     Route: 042
     Dates: start: 20040305, end: 20040308
  8. PANTOZOL                           /01263202/ [Concomitant]
     Route: 048
     Dates: start: 20040309, end: 20040310
  9. NORADRENALIN [Concomitant]
     Route: 042
     Dates: start: 20040305, end: 20040305
  10. NORADRENALIN [Concomitant]
     Route: 042
     Dates: start: 20040306, end: 20040306
  11. NORADRENALIN [Concomitant]
     Route: 042
     Dates: start: 20040308, end: 20040308
  12. RIOPAN                             /00141701/ [Concomitant]
     Route: 048
     Dates: start: 20040305, end: 20040305
  13. KCL 7.45% BRAUN [Concomitant]
     Route: 042
     Dates: start: 20040306, end: 20040306
  14. KCL 7.45% BRAUN [Concomitant]
     Route: 042
     Dates: start: 20040307, end: 20040307
  15. KCL 7.45% BRAUN [Concomitant]
     Route: 042
     Dates: start: 20040308, end: 20040308
  16. KCL 7.45% BRAUN [Concomitant]
     Route: 042
     Dates: start: 20040309, end: 20040309
  17. KCL 7.45% BRAUN [Concomitant]
     Route: 042
     Dates: start: 20040310, end: 20040310
  18. DOLANTIN [Concomitant]
     Route: 042
     Dates: start: 20040306, end: 20040306
  19. DOLANTIN [Concomitant]
     Route: 042
     Dates: start: 20040309, end: 20040310
  20. METOCLOPRAMID [Concomitant]
     Route: 048
     Dates: start: 20040306, end: 20040306
  21. ACETAMINOPHEN [Concomitant]
     Route: 054
     Dates: start: 20040307, end: 20040307
  22. MAGNESIUMSULFAT [Concomitant]
     Dosage: DOSE: 10% 5/50
     Route: 042
     Dates: start: 20040307, end: 20040307
  23. AJMALIN [Concomitant]
     Route: 042
     Dates: start: 20040307, end: 20040307
  24. BELOC                              /00376902/ [Concomitant]
     Route: 042
     Dates: start: 20040307, end: 20040307
  25. BELOC                              /00376902/ [Concomitant]
     Route: 042
     Dates: start: 20040308, end: 20040308
  26. MAGNESIUM [Concomitant]
     Dosage: DOSE: 20 MMOL/100
     Route: 042
     Dates: start: 20040308, end: 20040308
  27. BIFITERAL SIRUP [Concomitant]
     Route: 048
     Dates: start: 20040308, end: 20040308
  28. BIFITERAL SIRUP [Concomitant]
     Route: 048
     Dates: start: 20040309, end: 20040309
  29. BIFITERAL SIRUP [Concomitant]
     Route: 048
     Dates: start: 20040310, end: 20040310
  30. RIAMET [Concomitant]
     Dosage: DOSE: 2X4 TABLETS
     Route: 048
     Dates: start: 20040308, end: 20040309
  31. RIAMET [Concomitant]
     Dosage: DOSE: 1X4 TABLETS
     Route: 048
     Dates: start: 20040310, end: 20040310
  32. RED BLOOD CELLS [Concomitant]
     Dosage: DOSE: NOT REPORTED
     Route: 042
     Dates: start: 20040309, end: 20040310
  33. BUSCOPAN                           /00008702/ [Concomitant]
     Route: 042
     Dates: start: 20040309, end: 20040310
  34. METAMIZOL [Concomitant]
     Route: 048
     Dates: start: 20040309, end: 20040309
  35. METAMIZOL [Concomitant]
     Route: 048
     Dates: start: 20040310, end: 20040310
  36. EBRANTIL                           /00631801/ [Concomitant]
     Route: 042
     Dates: start: 20040310, end: 20040310
  37. CLINDAMYCIN [Concomitant]
     Route: 042
     Dates: start: 20040306, end: 20040310
  38. TRACE ELEMENTS [Concomitant]
     Dosage: DOSE: NOT REPORTED
     Dates: start: 20040306, end: 20040310
  39. CERNEVIT                           /01027001/ [Concomitant]
     Dosage: DOSE: NOT REPORTED
     Dates: start: 20040306, end: 20040310
  40. ASPIRIN [Concomitant]
     Dates: start: 20010101

REACTIONS (1)
  - PANCREATITIS ACUTE [None]
